FAERS Safety Report 16877544 (Version 11)
Quarter: 2020Q2

REPORT INFORMATION
  Report Type: Spontaneous
  Country: US (occurrence: US)
  Receive Date: 20191002
  Receipt Date: 20200430
  Transmission Date: 20200713
  Serious: Yes (Other)
  Sender: FDA-Public Use
  Company Number: US-PFIZER INC-2019421724

PATIENT
  Age: 77 Year
  Sex: Female
  Weight: 68.49 kg

DRUGS (8)
  1. LYRICA [Suspect]
     Active Substance: PREGABALIN
     Indication: PAIN
     Dosage: 1 DF, 2X/DAY
     Route: 048
  2. LYRICA [Suspect]
     Active Substance: PREGABALIN
     Dosage: 75 MG, 2X/DAY (1 CAPSULE BY MOUTH 2 TIMES A DAY AS NEEDED)
     Route: 048
  3. ATORVASTATIN [Concomitant]
     Active Substance: ATORVASTATIN
     Indication: BLOOD CHOLESTEROL ABNORMAL
     Dosage: UNK
  4. LYRICA [Suspect]
     Active Substance: PREGABALIN
     Indication: FIBROMYALGIA
     Dosage: 50 MG, UNK
  5. LYRICA [Suspect]
     Active Substance: PREGABALIN
     Indication: CERVICAL RADICULOPATHY
     Dosage: UNK
  6. LOSARTAN. [Concomitant]
     Active Substance: LOSARTAN
     Indication: HYPERTENSION
     Dosage: UNK
  7. LYRICA [Suspect]
     Active Substance: PREGABALIN
     Dosage: UNK, 2X/DAY
     Dates: start: 1983
  8. LYRICA [Suspect]
     Active Substance: PREGABALIN
     Dosage: 2 DF, AS NEEDED (1 CAPSULE 2 TIMES A DAY AS NEEDED)
     Route: 048

REACTIONS (14)
  - Malaise [Recovered/Resolved]
  - Neck pain [Unknown]
  - Expired product administered [Unknown]
  - Somnolence [Recovered/Resolved]
  - Sensory loss [Recovered/Resolved]
  - Back pain [Unknown]
  - Dysgraphia [Recovered/Resolved]
  - Gait disturbance [Unknown]
  - Memory impairment [Recovered/Resolved]
  - Musculoskeletal disorder [Unknown]
  - Tremor [Unknown]
  - Feeling of despair [Recovered/Resolved]
  - Drug dependence [Recovered/Resolved]
  - Visual acuity reduced [Recovered/Resolved]

NARRATIVE: CASE EVENT DATE: 201810
